FAERS Safety Report 26068493 (Version 1)
Quarter: 2025Q4

REPORT INFORMATION
  Report Type: Spontaneous
  Country: VE (occurrence: VE)
  Receive Date: 20251120
  Receipt Date: 20251120
  Transmission Date: 20260117
  Serious: Yes (Hospitalization)
  Sender: NOVARTIS
  Company Number: VE-002147023-NVSC2025VE178365

PATIENT
  Sex: Female

DRUGS (1)
  1. GLIVEC [Suspect]
     Active Substance: IMATINIB MESYLATE
     Indication: Chronic myeloid leukaemia
     Dosage: 400 MG (4 X 100MG)
     Route: 065

REACTIONS (6)
  - Abdominal pain [Unknown]
  - Gastrointestinal infection [Unknown]
  - General physical health deterioration [Unknown]
  - Diarrhoea [Unknown]
  - Asthenia [Not Recovered/Not Resolved]
  - Vomiting [Unknown]
